FAERS Safety Report 5395122-5 (Version None)
Quarter: 2007Q3

REPORT INFORMATION
  Report Type: 
  Country: None (occurrence: None)
  Receive Date: 20070724
  Receipt Date: 20070716
  Transmission Date: 20080115
  Serious: Yes (Life-Threatening, Hospitalization)
  Sender: FDA-Public Use
  Company Number: US-JNJFOC-20070305294

PATIENT
  Sex: Female
  Weight: 74.84 kg

DRUGS (1)
  1. LEVAQUIN [Suspect]
     Indication: SINUSITIS
     Route: 048

REACTIONS (3)
  - ELECTROCARDIOGRAM QT INTERVAL ABNORMAL [None]
  - MYOCARDIAL INFARCTION [None]
  - TROPONIN INCREASED [None]
